FAERS Safety Report 14330269 (Version 1)
Quarter: 2017Q4

REPORT INFORMATION
  Report Type: Report from Study
  Country: ES (occurrence: ES)
  Receive Date: 20171227
  Receipt Date: 20171227
  Transmission Date: 20180321
  Serious: Yes (Hospitalization)
  Sender: FDA-Public Use
  Company Number: ES-BAUSCH-BL-2017-034996

PATIENT
  Age: 84 Year
  Sex: Male

DRUGS (1)
  1. DEXAMETASONA (722A) [Suspect]
     Active Substance: DEXAMETHASONE
     Indication: BRAIN NEOPLASM
     Route: 048
     Dates: start: 2017

REACTIONS (1)
  - Cardiac failure [Recovering/Resolving]

NARRATIVE: CASE EVENT DATE: 20170524
